FAERS Safety Report 9779674 (Version 9)
Quarter: 2015Q1

REPORT INFORMATION
  Report Type: Report from Study
  Country: CA (occurrence: CA)
  Receive Date: 20131223
  Receipt Date: 20150212
  Transmission Date: 20150721
  Serious: Yes (Death, Hospitalization, Other)
  Sender: FDA-Public Use
  Company Number: PHHY2013CA072457

PATIENT
  Age: 85 Year
  Sex: Male

DRUGS (3)
  1. SANDOSTATIN LAR DEPOT [Suspect]
     Active Substance: OCTREOTIDE ACETATE
     Dosage: 20 MG EVERY FOUR WEEK
     Route: 030
     Dates: start: 20130601
  2. SANDOSTATIN LAR DEPOT [Suspect]
     Active Substance: OCTREOTIDE ACETATE
     Indication: NEUROENDOCRINE TUMOUR
     Dosage: 30 MG, EVERY 4 WEEKS
     Route: 030
     Dates: start: 20130531
  3. SANDOSTATIN LAR DEPOT [Suspect]
     Active Substance: OCTREOTIDE ACETATE
     Dosage: 30 MG, ONCE A MONTH
     Route: 030
     Dates: end: 20150119

REACTIONS (8)
  - Second primary malignancy [Unknown]
  - Blood pressure increased [Unknown]
  - Leukaemia [Unknown]
  - Catheter site haemorrhage [Unknown]
  - Diarrhoea [Unknown]
  - Death [Fatal]
  - Prostatic disorder [Unknown]
  - Heart rate irregular [Unknown]

NARRATIVE: CASE EVENT DATE: 20131022
